FAERS Safety Report 13903006 (Version 2)
Quarter: 2017Q3

REPORT INFORMATION
  Report Type: Report from Study
  Country: CA (occurrence: CA)
  Receive Date: 20170824
  Receipt Date: 20170826
  Transmission Date: 20171127
  Serious: Yes (Other)
  Sender: FDA-Public Use
  Company Number: CA-ROCHE-1924659

PATIENT
  Age: 43 Year
  Sex: Male
  Weight: 98 kg

DRUGS (1)
  1. AVASTIN [Suspect]
     Active Substance: BEVACIZUMAB
     Indication: BRAIN NEOPLASM MALIGNANT
     Route: 042
     Dates: start: 20170411, end: 20170626

REACTIONS (8)
  - Confusional state [Unknown]
  - Protein urine present [Unknown]
  - Mean cell haemoglobin concentration decreased [Unknown]
  - Diarrhoea [Recovered/Resolved]
  - Cough [Unknown]
  - Monocyte count increased [Unknown]
  - Amnesia [Unknown]
  - Blood chloride increased [Unknown]

NARRATIVE: CASE EVENT DATE: 20170531
